FAERS Safety Report 8851468 (Version 2)
Quarter: 2012Q4

REPORT INFORMATION
  Report Type: 
  Country: US (occurrence: US)
  Receive Date: 20121022
  Receipt Date: 20121206
  Transmission Date: 20130627
  Serious: Yes (Hospitalization)
  Sender: FDA-Public Use
  Company Number: US-BIOGENIDEC-2012BI042173

PATIENT
  Age: 44 Year
  Sex: Female

DRUGS (2)
  1. AVONEX [Suspect]
     Indication: MULTIPLE SCLEROSIS
     Route: 030
     Dates: start: 19980701, end: 20081103
  2. AVONEX [Suspect]
     Indication: MULTIPLE SCLEROSIS
     Route: 030
     Dates: start: 20120810

REACTIONS (9)
  - Malnutrition [Unknown]
  - Dehydration [Unknown]
  - Failure to thrive [Unknown]
  - Tachycardia [Unknown]
  - Pyrexia [Unknown]
  - Device related sepsis [Recovered/Resolved]
  - Clostridium difficile infection [Unknown]
  - Weight decreased [Unknown]
  - Incontinence [Not Recovered/Not Resolved]
